FAERS Safety Report 7228830-1 (Version None)
Quarter: 2011Q1

REPORT INFORMATION
  Report Type: 
  Country: None (occurrence: None)
  Receive Date: 20110117
  Receipt Date: 20100927
  Transmission Date: 20110831
  Serious: Yes (Other)
  Sender: FDA-Public Use
  Company Number: US-BAYER-201034233NA

PATIENT
  Sex: Female
  Weight: 72.562 kg

DRUGS (4)
  1. YASMIN [Suspect]
     Indication: PRODUCT USED FOR UNKNOWN INDICATION
     Route: 048
  2. OCELLA [Suspect]
     Indication: ORAL CONTRACEPTION
     Dosage: UNK UNK, UNK
     Route: 048
     Dates: start: 20050101, end: 20060101
  3. UNCODEABLE ^UNCLASSIFIABLE^ [Concomitant]
     Dosage: 1080 MG, UNK
     Dates: start: 20091124
  4. YAZ [Suspect]
     Indication: ORAL CONTRACEPTION
     Dosage: UNK UNK, UNK
     Route: 048
     Dates: start: 20050101, end: 20060101

REACTIONS (6)
  - CHOLECYSTITIS CHRONIC [None]
  - ABDOMINAL DISCOMFORT [None]
  - FLANK PAIN [None]
  - CHOLELITHIASIS [None]
  - NEPHROLITHIASIS [None]
  - NAUSEA [None]
